FAERS Safety Report 8170821-0 (Version None)
Quarter: 2012Q1

REPORT INFORMATION
  Report Type: 
  Country: None (occurrence: None)
  Receive Date: 20120104
  Receipt Date: 20111207
  Transmission Date: 20120608
  Serious: No
  Sender: FDA-Public Use
  Company Number: 2011HGS-002931

PATIENT
  Age: 46 Year
  Sex: Female
  Weight: 88.4514 kg

DRUGS (4)
  1. CELLCEPT(MYCOPHENOLATE MOFETIL)(MYCOPHENOLATE MOFETIL [Concomitant]
  2. ZOLOFT [Concomitant]
  3. SYNTHROID (LEVOTHYROXINE SODIUM) (LEVOTHYROXINE SODIUM) [Concomitant]
  4. BENLYSTA [Suspect]
     Indication: SYSTEMIC LUPUS ERYTHEMATOSUS
     Dosage: 10 MG/KG, 1 IN 28 D, INTRAVENOUS DRIP
     Route: 041
     Dates: start: 20110525

REACTIONS (5)
  - SKIN DISCOLOURATION [None]
  - LIP DISCOLOURATION [None]
  - PAROSMIA [None]
  - DYSGEUSIA [None]
  - BRONCHITIS [None]
